FAERS Safety Report 18382633 (Version 1)
Quarter: 2020Q4

REPORT INFORMATION
  Report Type: Spontaneous
  Country: PL (occurrence: PL)
  Receive Date: 20201014
  Receipt Date: 20201014
  Transmission Date: 20210114
  Serious: Yes (Other)
  Sender: FDA-Public Use
  Company Number: NVSC2020PL269693

PATIENT
  Age: 56 Year
  Sex: Male

DRUGS (3)
  1. CYCLOSPORINE. [Suspect]
     Active Substance: CYCLOSPORINE
     Indication: DERMATITIS EXFOLIATIVE GENERALISED
     Dosage: 4 MG/KG
     Route: 065
  2. CYCLOSPORINE. [Suspect]
     Active Substance: CYCLOSPORINE
     Dosage: 300 MG, QD
     Route: 065
  3. METHOTREXATE. [Suspect]
     Active Substance: METHOTREXATE
     Indication: DERMATITIS EXFOLIATIVE GENERALISED
     Dosage: 15-25MG, UNK
     Route: 065
     Dates: end: 201303

REACTIONS (4)
  - Full blood count decreased [Unknown]
  - Disease recurrence [Unknown]
  - Dermatitis exfoliative generalised [Unknown]
  - Product use in unapproved indication [Unknown]
